FAERS Safety Report 6228726-8 (Version None)
Quarter: 2009Q2

REPORT INFORMATION
  Report Type: 
  Country: None (occurrence: None)
  Receive Date: 20090611
  Receipt Date: 20090611
  Transmission Date: 20091009
  Serious: Yes (Other)
  Sender: FDA-Public Use
  Company Number: None

PATIENT
  Sex: Male

DRUGS (1)
  1. DIVALPROEX SODIUM [Suspect]
     Indication: EPILEPSY
     Dosage: 500MG 2TAB QAM P.O.; 3 TABS QHS P.O.
     Route: 048
     Dates: start: 20081201, end: 20090401

REACTIONS (3)
  - ABNORMAL BEHAVIOUR [None]
  - AGITATION [None]
  - CONDITION AGGRAVATED [None]
